FAERS Safety Report 4720979-8 (Version None)
Quarter: 2005Q3

REPORT INFORMATION
  Report Type: 
  Country: None (occurrence: None)
  Receive Date: 20050719
  Receipt Date: 20041025
  Transmission Date: 20060218
  Serious: Yes (Other)
  Sender: FDA-Public Use
  Company Number: 2004238482US

PATIENT
  Age: 67 Year
  Sex: Male
  Weight: 93 kg

DRUGS (4)
  1. CELEBREX [Suspect]
     Indication: ARTHRITIS
     Dosage: 200 MG, QD
     Dates: start: 20010201, end: 20010210
  2. ZOCOR [Concomitant]
  3. DETROL [Concomitant]
  4. TOPROL-XL [Concomitant]

REACTIONS (1)
  - DIARRHOEA HAEMORRHAGIC [None]
